FAERS Safety Report 23803779 (Version 1)
Quarter: 2024Q2

REPORT INFORMATION
  Report Type: Spontaneous
  Country: US (occurrence: US)
  Receive Date: 20240501
  Receipt Date: 20240501
  Transmission Date: 20240715
  Serious: No
  Sender: FDA-Public Use
  Company Number: US-VEROBIOTECH-2024USVEROSPO00076

PATIENT

DRUGS (1)
  1. GENOSYL [Suspect]
     Active Substance: NITRIC OXIDE
     Indication: Product used for unknown indication
     Dosage: 15 PPM

REACTIONS (2)
  - Device issue [Unknown]
  - Drug level fluctuating [Unknown]
